FAERS Safety Report 12486233 (Version 1)
Quarter: 2016Q2

REPORT INFORMATION
  Report Type: Spontaneous
  Country: US (occurrence: US)
  Receive Date: 20160621
  Receipt Date: 20160621
  Transmission Date: 20160815
  Serious: Yes (Death, Hospitalization)
  Sender: FDA-Public Use
  Company Number: US-MYLANLABS-2016M1025855

PATIENT

DRUGS (6)
  1. FLUOROURACIL. [Suspect]
     Active Substance: FLUOROURACIL
     Indication: PANCREATIC CARCINOMA METASTATIC
     Dosage: 2550MG OVER 30 MINUTES ONCE WEEKLY ON WEEKS 1-3 FOLLOWED BY A REST PERIOD OF 1 WEEK
     Route: 040
  2. WARFARIN [Concomitant]
     Active Substance: WARFARIN
     Route: 065
  3. ZOLPIDEM [Concomitant]
     Active Substance: ZOLPIDEM\ZOLPIDEM TARTRATE
     Route: 065
  4. VISTOGARD [Concomitant]
     Active Substance: URIDINE TRIACETATE
     Indication: PANCREATIC CARCINOMA METASTATIC
     Dosage: AT EVERY 8 HOURS FOR 8 DOSES
     Route: 048
  5. ALPRAZOLAM. [Concomitant]
     Active Substance: ALPRAZOLAM
     Route: 065
  6. OXYCONTIN [Concomitant]
     Active Substance: OXYCODONE HYDROCHLORIDE
     Route: 065

REACTIONS (8)
  - Mental status changes [Fatal]
  - Asthenia [Unknown]
  - Weight decreased [Unknown]
  - Disseminated intravascular coagulation [Fatal]
  - Pancytopenia [Fatal]
  - Decreased appetite [Unknown]
  - Blood creatinine increased [Unknown]
  - Nausea [Unknown]
